FAERS Safety Report 7535410-7 (Version None)
Quarter: 2011Q2

REPORT INFORMATION
  Report Type: 
  Country: None (occurrence: None)
  Receive Date: 20110609
  Receipt Date: 20110531
  Transmission Date: 20111010
  Serious: Yes (Hospitalization, Other)
  Sender: FDA-Public Use
  Company Number: FR-BRISTOL-MYERS SQUIBB COMPANY-15791841

PATIENT
  Age: 17 Year
  Sex: Female

DRUGS (4)
  1. ETOPOSIDE [Suspect]
     Indication: HODGKIN'S DISEASE
     Dates: start: 20070401
  2. IFOSFAMIDE [Suspect]
     Indication: HODGKIN'S DISEASE
     Dates: start: 20070401
  3. MITOGUAZONE [Suspect]
     Indication: HODGKIN'S DISEASE
     Dosage: DOSAGE: ON DAYS 1 AND DAY 5 OF THE CYCLE
     Dates: start: 20070401
  4. NAVELBINE [Suspect]
     Indication: HODGKIN'S DISEASE
     Dosage: DOSAGE: ON DAYS 1 AND DAY 5 OF THE CYCLE
     Dates: start: 20070401

REACTIONS (13)
  - PARAESTHESIA [None]
  - PROTEINURIA [None]
  - MYALGIA [None]
  - OEDEMA PERIPHERAL [None]
  - VULVOVAGINAL ERYTHEMA [None]
  - RASH MACULAR [None]
  - PANNICULITIS [None]
  - ASTHENIA [None]
  - TONGUE DISORDER [None]
  - HYPONATRAEMIA [None]
  - EPIDERMAL NECROSIS [None]
  - HYPOTHERMIA [None]
  - BLISTER [None]
